FAERS Safety Report 5400655-9 (Version None)
Quarter: 2007Q3

REPORT INFORMATION
  Report Type: 
  Country: None (occurrence: None)
  Receive Date: 20070730
  Receipt Date: 20070720
  Transmission Date: 20080115
  Serious: No
  Sender: FDA-Public Use
  Company Number: DE-PFIZER INC-2007037986

PATIENT
  Sex: Male

DRUGS (4)
  1. CAMPTOSAR [Suspect]
     Indication: COLON CANCER
     Route: 042
  2. FLUOROURACIL [Suspect]
     Indication: COLON CANCER
     Route: 042
  3. FOLINIC ACID [Suspect]
     Indication: COLON CANCER
     Route: 042
  4. AVASTIN [Suspect]
     Route: 042

REACTIONS (4)
  - ANGIOEDEMA [None]
  - HYPERTENSION [None]
  - PHOTODERMATOSIS [None]
  - TREATMENT NONCOMPLIANCE [None]
